FAERS Safety Report 5857267-2 (Version None)
Quarter: 2008Q3

REPORT INFORMATION
  Report Type: 
  Country: None (occurrence: None)
  Receive Date: 20080822
  Receipt Date: 20080812
  Transmission Date: 20090109
  Serious: Yes (Disabling, Other)
  Sender: FDA-Public Use
  Company Number: 2008-02971

PATIENT
  Age: 78 Year
  Sex: Male
  Weight: 86.2 kg

DRUGS (1)
  1. VELCADE [Suspect]
     Indication: MULTIPLE MYELOMA
     Dates: start: 20061201

REACTIONS (8)
  - DYSPNOEA [None]
  - IMPAIRED DRIVING ABILITY [None]
  - LIMB DISCOMFORT [None]
  - MUSCLE TIGHTNESS [None]
  - PAIN [None]
  - PARAESTHESIA [None]
  - RENAL DISORDER [None]
  - WALKING AID USER [None]
